FAERS Safety Report 18767148 (Version 1)
Quarter: 2021Q1

REPORT INFORMATION
  Report Type: Other
  Country: CZ (occurrence: CZ)
  Receive Date: 20210121
  Receipt Date: 20210121
  Transmission Date: 20210419
  Serious: Yes (Death, Other)
  Sender: FDA-Public Use
  Company Number: CZ-ROCHE-2753307

PATIENT

DRUGS (15)
  1. RITUXIMAB. [Suspect]
     Active Substance: RITUXIMAB
     Indication: CHRONIC LYMPHOCYTIC LEUKAEMIA
     Dosage: UNK, 5 CYCLES AS FCR (FLUDARABINE, CYCLOPHOSPHAMIDE, RITUXIMAB)
     Route: 041
     Dates: start: 201901
  2. VALACICLOVIR [Concomitant]
     Active Substance: VALACYCLOVIR HYDROCHLORIDE
     Indication: INFECTION PROPHYLAXIS
     Dosage: UNK
     Dates: start: 201901
  3. CYCLOPHOSPHAMIDE. [Suspect]
     Active Substance: CYCLOPHOSPHAMIDE
     Indication: CHRONIC LYMPHOCYTIC LEUKAEMIA
     Dosage: UNK, 5 CYCLES AS FCR (FLUDARABINE, CYCLOPHOSPHAMIDE, RITUXIMAB)
     Route: 065
     Dates: start: 201901
  4. CHOP [Suspect]
     Active Substance: CYCLOPHOSPHAMIDE\DOXORUBICIN\PREDNISONE\VINCRISTINE
     Indication: CHRONIC LYMPHOCYTIC LEUKAEMIA
     Dosage: UNK, CYCLIC (R?CHOP)
     Route: 065
  5. FLUDARABINE [Suspect]
     Active Substance: FLUDARABINE PHOSPHATE
     Indication: PREMEDICATION
     Dosage: UNK, PREPARATORY REGIMEN PRIOR TO ALLO?HCT
     Route: 065
  6. VENETOCLAX. [Concomitant]
     Active Substance: VENETOCLAX
     Dosage: UNK, RESCUE TREATMENT
  7. BUSULFAN. [Concomitant]
     Active Substance: BUSULFAN
     Indication: PREMEDICATION
     Dosage: UNK, PREPARATORY REGIMEN PRIOR TO ALLO?HCT
  8. G?CSF [Concomitant]
     Active Substance: GRANULOCYTE COLONY-STIMULATING FACTOR NOS
     Indication: PROPHYLAXIS
     Dosage: UNK
     Dates: start: 201901
  9. G?CSF [Concomitant]
     Active Substance: GRANULOCYTE COLONY-STIMULATING FACTOR NOS
     Indication: FEBRILE NEUTROPENIA
  10. RITUXIMAB. [Suspect]
     Active Substance: RITUXIMAB
     Dosage: UNK, R?CHOP
     Route: 041
  11. SULFAMETHOXAZOLE;TRIMETHOPRIM [Concomitant]
     Active Substance: SULFAMETHOXAZOLE\TRIMETHOPRIM
     Indication: INFECTION PROPHYLAXIS
     Dosage: UNK
     Dates: start: 201901
  12. TACROLIMUS. [Concomitant]
     Active Substance: TACROLIMUS
     Indication: IMMUNOSUPPRESSION
  13. MYCOPHENOLATE MOFETIL. [Concomitant]
     Active Substance: MYCOPHENOLATE MOFETIL
     Indication: IMMUNOSUPPRESSION
  14. IBRUTINIB [Concomitant]
     Active Substance: IBRUTINIB
     Dosage: 420 MG, DAILY
     Dates: start: 201909
  15. FLUDARABINE [Suspect]
     Active Substance: FLUDARABINE PHOSPHATE
     Indication: CHRONIC LYMPHOCYTIC LEUKAEMIA
     Dosage: UNK, 5 CYCLES AS FCR (FLUDARABINE, CYCLOPHOSPHAMIDE, RITUXIMAB)
     Route: 065
     Dates: start: 201901

REACTIONS (9)
  - Hypercalcaemia [Unknown]
  - Tissue infiltration [Unknown]
  - Allogenic stem cell transplantation [Unknown]
  - Neutropenia [Unknown]
  - White blood cell count decreased [Unknown]
  - Chronic lymphocytic leukaemia [Unknown]
  - Febrile neutropenia [Unknown]
  - Richter^s syndrome [Unknown]
  - Death [Fatal]

NARRATIVE: CASE EVENT DATE: 202002
